FAERS Safety Report 7166239-X (Version None)
Quarter: 2010Q4

REPORT INFORMATION
  Report Type: 
  Country: None (occurrence: None)
  Receive Date: 20101201
  Receipt Date: 20101118
  Transmission Date: 20110411
  Serious: Yes (Hospitalization, Other)
  Sender: FDA-Public Use
  Company Number: 022365

PATIENT
  Age: 57 Year
  Sex: Male
  Weight: 73 kg

DRUGS (21)
  1. LEVETIRACETAM [Suspect]
     Dosage: (500 MG 1X/12 HOURS ORAL) ; (750 MG BID ORAL) ; (500 MG BID ORAL)
     Route: 048
     Dates: start: 20091008, end: 20091009
  2. LEVETIRACETAM [Suspect]
     Dosage: (500 MG 1X/12 HOURS ORAL) ; (750 MG BID ORAL) ; (500 MG BID ORAL)
     Route: 048
     Dates: start: 20091010, end: 20091012
  3. LEVETIRACETAM [Suspect]
     Dosage: (500 MG 1X/12 HOURS ORAL) ; (750 MG BID ORAL) ; (500 MG BID ORAL)
     Route: 048
     Dates: start: 20091013
  4. PHENOBARBITAL [Suspect]
     Dosage: (64.8 MG BID ORAL) ; (32.4 MG BID ORAL) ; (16.2 MG BID ORAL)
     Route: 048
     Dates: start: 20091012, end: 20091014
  5. PHENOBARBITAL [Suspect]
     Dosage: (64.8 MG BID ORAL) ; (32.4 MG BID ORAL) ; (16.2 MG BID ORAL)
     Route: 048
     Dates: start: 20091015, end: 20091113
  6. PHENOBARBITAL [Suspect]
     Dosage: (64.8 MG BID ORAL) ; (32.4 MG BID ORAL) ; (16.2 MG BID ORAL)
     Route: 048
     Dates: end: 20101011
  7. PROGRAF [Suspect]
     Indication: IMMUNOSUPPRESSANT DRUG THERAPY
     Dosage: SEE IMAGE
     Route: 048
     Dates: start: 20091007, end: 20091008
  8. PROGRAF [Suspect]
     Indication: IMMUNOSUPPRESSANT DRUG THERAPY
     Dosage: SEE IMAGE
     Route: 048
     Dates: start: 20091009, end: 20091009
  9. PROGRAF [Suspect]
     Indication: IMMUNOSUPPRESSANT DRUG THERAPY
     Dosage: SEE IMAGE
     Route: 048
     Dates: start: 20091010, end: 20091011
  10. PROGRAF [Suspect]
     Indication: IMMUNOSUPPRESSANT DRUG THERAPY
     Dosage: SEE IMAGE
     Route: 048
     Dates: start: 20091012, end: 20091012
  11. PROGRAF [Suspect]
     Indication: IMMUNOSUPPRESSANT DRUG THERAPY
     Dosage: SEE IMAGE
     Route: 048
     Dates: start: 20091013, end: 20091013
  12. PROGRAF [Suspect]
     Indication: IMMUNOSUPPRESSANT DRUG THERAPY
     Dosage: SEE IMAGE
     Route: 048
     Dates: start: 20091014, end: 20091116
  13. PROGRAF [Suspect]
     Indication: IMMUNOSUPPRESSANT DRUG THERAPY
     Dosage: SEE IMAGE
     Route: 048
     Dates: start: 20091117
  14. FOLIC ACID [Concomitant]
  15. CARBAMAZEPINE [Concomitant]
  16. TAMSULOSIN [Concomitant]
  17. FINASTERIDE [Concomitant]
  18. BASILIXIMAB [Concomitant]
  19. METHYLPREDNISOLONE [Concomitant]
  20. CELLCEPT [Concomitant]
  21. PREDNISONE [Concomitant]

REACTIONS (3)
  - DRUG INTERACTION [None]
  - DRUG LEVEL BELOW THERAPEUTIC [None]
  - KIDNEY TRANSPLANT REJECTION [None]
